FAERS Safety Report 20544743 (Version 2)
Quarter: 2022Q1

REPORT INFORMATION
  Report Type: Report from Study
  Country: US (occurrence: US)
  Receive Date: 20220303
  Receipt Date: 20220330
  Transmission Date: 20220423
  Serious: Yes (Other)
  Sender: FDA-Public Use
  Company Number: US-ABBVIE-22K-163-4297259-00

PATIENT
  Sex: Female

DRUGS (4)
  1. HUMIRA [Suspect]
     Active Substance: ADALIMUMAB
     Indication: Crohn^s disease
     Dosage: CITRATE FREE
     Route: 058
  2. PFIZER-BIONTECH COVID-19 VACCINE [Concomitant]
     Active Substance: TOZINAMERAN
     Indication: COVID-19 immunisation
     Dosage: FIRST DOSE
     Route: 030
  3. PFIZER-BIONTECH COVID-19 VACCINE [Concomitant]
     Active Substance: TOZINAMERAN
     Dosage: SECOND DOSE
     Route: 030
  4. PFIZER-BIONTECH COVID-19 VACCINE [Concomitant]
     Active Substance: TOZINAMERAN
     Dosage: BOOSTER DOSE
     Route: 030

REACTIONS (13)
  - Internal haemorrhage [Unknown]
  - Intensive care [Unknown]
  - Infection [Recovering/Resolving]
  - Purulence [Recovering/Resolving]
  - Computerised tomogram abdomen abnormal [Unknown]
  - Computerised tomogram thorax abnormal [Unknown]
  - Fibrin D dimer increased [Unknown]
  - Renal abscess [Unknown]
  - Pericardial effusion [Unknown]
  - Spinal pain [Unknown]
  - Crohn^s disease [Unknown]
  - Pleural effusion [Unknown]
  - Localised infection [Recovering/Resolving]
